FAERS Safety Report 23698279 (Version 1)
Quarter: 2024Q2

REPORT INFORMATION
  Report Type: Spontaneous
  Country: US (occurrence: None)
  Receive Date: 20240402
  Receipt Date: 20240402
  Transmission Date: 20240716
  Serious: Yes (Other)
  Sender: FDA-Public Use
  Company Number: None

PATIENT
  Age: 75 Year
  Sex: Male
  Weight: 77.85 kg

DRUGS (8)
  1. AMOXICILLIN [Suspect]
     Active Substance: AMOXICILLIN
     Indication: Antibiotic prophylaxis
     Dosage: 4 TABLET 1 HR BEFORE DENTAL ORL?
     Route: 048
     Dates: start: 20240401, end: 20240401
  2. AMOXICILLIN [Suspect]
     Active Substance: AMOXICILLIN
     Indication: Dental operation
  3. AMOXICILLIN [Suspect]
     Active Substance: AMOXICILLIN
     Indication: Hip arthroplasty
  4. TELMISARTAN [Concomitant]
     Active Substance: TELMISARTAN
  5. METFORMIN [Concomitant]
     Active Substance: METFORMIN HYDROCHLORIDE
  6. PANTOPRAZOLE [Concomitant]
     Active Substance: PANTOPRAZOLE
  7. FINASTERIDE [Concomitant]
     Active Substance: FINASTERIDE
  8. AZELASTINE [Concomitant]
     Active Substance: AZELASTINE\AZELASTINE HYDROCHLORIDE

REACTIONS (3)
  - Headache [None]
  - Headache [None]
  - Headache [None]

NARRATIVE: CASE EVENT DATE: 20240401
